FAERS Safety Report 7530766-3 (Version None)
Quarter: 2011Q2

REPORT INFORMATION
  Report Type: 
  Country: None (occurrence: None)
  Receive Date: 20110607
  Receipt Date: 20110602
  Transmission Date: 20111010
  Serious: Yes (Life-Threatening, Hospitalization, Disabling)
  Sender: FDA-Public Use
  Company Number: US-MERCK-1105USA03707

PATIENT
  Age: 49 Year
  Sex: Female

DRUGS (9)
  1. TRAMADOL HYDROCHLORIDE [Concomitant]
     Route: 065
  2. HYDROCODONE [Concomitant]
     Route: 065
  3. ETODOLAC [Concomitant]
     Route: 065
  4. CARVEDILOL [Concomitant]
     Route: 065
  5. JANUMET [Suspect]
     Indication: DIABETES MELLITUS
     Route: 048
     Dates: start: 20100505, end: 20110501
  6. DRISDOL [Concomitant]
     Route: 065
  7. BENAZEPRIL HYDROCHLORIDE [Concomitant]
     Route: 065
  8. NEXIUM [Concomitant]
     Route: 065
  9. CYCLOBENZAPRINE HYDROCHLORIDE [Concomitant]
     Route: 065

REACTIONS (1)
  - RHABDOMYOLYSIS [None]
